FAERS Safety Report 9703243 (Version 1)
Quarter: 2013Q4

REPORT INFORMATION
  Report Type: Spontaneous
  Country: US (occurrence: US)
  Receive Date: 20131122
  Receipt Date: 20131122
  Transmission Date: 20140711
  Serious: Yes (Hospitalization, Other)
  Sender: FDA-Public Use
  Company Number: US-009507513-1311USA008955

PATIENT
  Age: 62 Year
  Sex: Female

DRUGS (3)
  1. JANUVIA [Suspect]
     Indication: TYPE 2 DIABETES MELLITUS
     Dosage: 100 MG ONCE PER DAY
     Route: 048
  2. METFORMIN [Concomitant]
  3. INSULIN [Concomitant]

REACTIONS (1)
  - Pancreatitis [Recovered/Resolved]
